FAERS Safety Report 11990469 (Version 1)
Quarter: 2016Q1

REPORT INFORMATION
  Report Type: Spontaneous
  Country: US (occurrence: US)
  Receive Date: 20160202
  Receipt Date: 20160202
  Transmission Date: 20160526
  Serious: No
  Sender: FDA-Public Use
  Company Number: US-ASTRAZENECA-2016SE07417

PATIENT
  Sex: Female

DRUGS (1)
  1. MOVANTIK [Suspect]
     Active Substance: NALOXEGOL OXALATE
     Dosage: HALF A PILL A DAY
     Route: 048

REACTIONS (5)
  - Gastrointestinal disorder [Unknown]
  - Abdominal pain upper [Unknown]
  - Gallbladder disorder [Unknown]
  - Intentional product misuse [Unknown]
  - Ovarian cyst [Unknown]
